FAERS Safety Report 6882347-2 (Version None)
Quarter: 2010Q3

REPORT INFORMATION
  Report Type: 
  Country: None (occurrence: None)
  Receive Date: 20100729
  Receipt Date: 20100329
  Transmission Date: 20110219
  Serious: No
  Sender: FDA-Public Use
  Company Number: US-MYLANLABS-2010S1005161

PATIENT
  Age: 55 Year
  Sex: Female

DRUGS (3)
  1. LEVOTHYROXINE SODIUM [Suspect]
     Indication: HYPOTHYROIDISM
     Route: 048
     Dates: start: 20100223, end: 20100301
  2. LEVOTHYROXINE SODIUM [Suspect]
     Route: 048
     Dates: start: 20100302
  3. LIOTHYRONINE SODIUM [Suspect]
     Indication: HYPOTHYROIDISM
     Route: 048
     Dates: start: 20100223

REACTIONS (9)
  - DRY MOUTH [None]
  - EAR DISCOMFORT [None]
  - EAR PAIN [None]
  - FEELING ABNORMAL [None]
  - HEADACHE [None]
  - REACTION TO DRUG EXCIPIENTS [None]
  - SEDATION [None]
  - SINUS DISORDER [None]
  - SNEEZING [None]
